FAERS Safety Report 8432862-5 (Version None)
Quarter: 2012Q2

REPORT INFORMATION
  Report Type: 
  Country: None (occurrence: None)
  Receive Date: 20120607
  Receipt Date: 20120529
  Transmission Date: 20120825
  Serious: Yes (Hospitalization, Other)
  Sender: FDA-Public Use
  Company Number: DKLU1081342

PATIENT
  Age: 13 Year
  Sex: Male

DRUGS (1)
  1. ONFI [Suspect]
     Indication: PRODUCT USED FOR UNKNOWN INDICATION
     Dosage: 1 WEEK AGO

REACTIONS (2)
  - RESPIRATORY TRACT INFECTION [None]
  - EAR INFECTION [None]
